FAERS Safety Report 6121970-X (Version None)
Quarter: 2009Q1

REPORT INFORMATION
  Report Type: 
  Country: None (occurrence: None)
  Receive Date: 20090317
  Receipt Date: 20090309
  Transmission Date: 20090719
  Serious: Yes (Hospitalization)
  Sender: FDA-Public Use
  Company Number: US-ABBOTT-09P-163-0561329-00

PATIENT
  Sex: Male
  Weight: 22.7 kg

DRUGS (2)
  1. HUMIRA [Suspect]
     Indication: CROHN'S DISEASE
     Route: 058
     Dates: end: 20090211
  2. MORPHINE SULFATE [Concomitant]
     Indication: PAIN
     Dosage: UNKNOWN
     Route: 041
     Dates: start: 20090201

REACTIONS (6)
  - ABDOMINAL PAIN [None]
  - CANDIDIASIS [None]
  - DYSPNOEA [None]
  - GASTROINTESTINAL FISTULA [None]
  - RASH PUSTULAR [None]
  - SEPSIS [None]
